FAERS Safety Report 8767525 (Version 3)
Quarter: 2012Q4

REPORT INFORMATION
  Report Type: 
  Country: US (occurrence: US)
  Receive Date: 20120904
  Receipt Date: 20121011
  Transmission Date: 20130627
  Serious: Yes (Hospitalization)
  Sender: FDA-Public Use
  Company Number: US-ACTELION-A-US2011-51359

PATIENT
  Age: 85 Year
  Sex: Female

DRUGS (3)
  1. TRACLEER [Suspect]
     Indication: PULMONARY ARTERIAL HYPERTENSION
     Dosage: UNK
     Route: 048
  2. WARFARIN [Concomitant]
  3. ASPIRIN [Concomitant]

REACTIONS (11)
  - Polyp [Unknown]
  - Myocardial infarction [Unknown]
  - Syncope [Unknown]
  - Presyncope [Unknown]
  - Transfusion [Unknown]
  - Anaemia [Unknown]
  - Dizziness [Unknown]
  - Dyspnoea [Not Recovered/Not Resolved]
  - Fluid retention [Unknown]
  - Diuretic therapy [Unknown]
  - Cardiac valve disease [Unknown]
